FAERS Safety Report 13696893 (Version 1)
Quarter: 2017Q2

REPORT INFORMATION
  Report Type: Spontaneous
  Country: US (occurrence: US)
  Receive Date: 20170627
  Receipt Date: 20170627
  Transmission Date: 20170830
  Serious: Yes (Life-Threatening, Hospitalization, Disabling)
  Sender: FDA-Public Use
  Company Number: None

PATIENT
  Age: 53 Year
  Sex: Female
  Weight: 49.5 kg

DRUGS (6)
  1. TEMAZEPAM. [Concomitant]
     Active Substance: TEMAZEPAM
  2. CALCILOTROL [Concomitant]
  3. SEROQUEL [Concomitant]
     Active Substance: QUETIAPINE FUMARATE
  4. CYMBALTA [Suspect]
     Active Substance: DULOXETINE HYDROCHLORIDE
     Indication: FIBROMYALGIA
     Dosage: ?          OTHER STRENGTH:MG;QUANTITY:1 CAPSULE(S);?
     Route: 048
     Dates: start: 20151030, end: 20170601
  5. LORAZEPAM. [Concomitant]
     Active Substance: LORAZEPAM
  6. HALDOL [Concomitant]
     Active Substance: HALOPERIDOL

REACTIONS (20)
  - Depression [None]
  - Vomiting [None]
  - Bedridden [None]
  - Arthralgia [None]
  - Nightmare [None]
  - Suicide attempt [None]
  - Incorrect dose administered [None]
  - Abdominal pain upper [None]
  - Gastrointestinal pain [None]
  - Paraesthesia [None]
  - Aggression [None]
  - Physical assault [None]
  - Diarrhoea [None]
  - Dizziness [None]
  - Psychotic disorder [None]
  - Myalgia [None]
  - Fall [None]
  - Impaired driving ability [None]
  - Withdrawal syndrome [None]
  - Lethargy [None]

NARRATIVE: CASE EVENT DATE: 20160725
